FAERS Safety Report 24613000 (Version 1)
Quarter: 2024Q4

REPORT INFORMATION
  Report Type: Other
  Country: TR (occurrence: TR)
  Receive Date: 20241113
  Receipt Date: 20241113
  Transmission Date: 20250115
  Serious: Yes (Hospitalization, Other)
  Sender: YOUNGTECH PHARMACEUTICALS, INC
  Company Number: TR-YoungTech Pharmaceuticals, Inc.-2164967

PATIENT
  Age: 17 Year
  Sex: Male

DRUGS (2)
  1. METOPROLOL TARTRATE [Suspect]
     Active Substance: METOPROLOL TARTRATE
     Indication: Chest pain
  2. ASPIRIN [Suspect]
     Active Substance: ASPIRIN

REACTIONS (2)
  - Prinzmetal angina [Recovered/Resolved]
  - Acute coronary syndrome [Recovered/Resolved]
